FAERS Safety Report 5455125-9 (Version None)
Quarter: 2007Q3

REPORT INFORMATION
  Report Type: 
  Country: None (occurrence: None)
  Receive Date: 20070914
  Receipt Date: 20070904
  Transmission Date: 20080115
  Serious: Yes (Other)
  Sender: FDA-Public Use
  Company Number: CHPA2007CA09239

PATIENT
  Age: 59 Year
  Sex: Female

DRUGS (4)
  1. PRODIEM OVERNIGHT RELIEF THERAPY (NCH)(SENNA GLYCOSIDES (CA SALTS OF P [Suspect]
     Indication: CONSTIPATION
     Dosage: 15 MG, QHS FOR THREE MONTHS, ORAL
     Route: 048
     Dates: start: 20070601, end: 20070830
  2. METFORMIN HCL [Concomitant]
  3. GLYBURIDE [Concomitant]
  4. CRESTOR [Concomitant]

REACTIONS (3)
  - HEPATIC ENZYME INCREASED [None]
  - INTENTIONAL DRUG MISUSE [None]
  - TREATMENT NONCOMPLIANCE [None]
